FAERS Safety Report 13495010 (Version 2)
Quarter: 2017Q2

REPORT INFORMATION
  Report Type: Report from Study
  Country: US (occurrence: US)
  Receive Date: 20170428
  Receipt Date: 20170630
  Transmission Date: 20170830
  Serious: No
  Sender: FDA-Public Use
  Company Number: PHEH2017US012479

PATIENT
  Age: 58 Year
  Sex: Male

DRUGS (2)
  1. AFINITOR [Suspect]
     Active Substance: EVEROLIMUS
     Indication: TUBEROUS SCLEROSIS
     Dosage: 10 MG, QD
     Route: 048
     Dates: start: 20170228, end: 20170403
  2. AFINITOR [Suspect]
     Active Substance: EVEROLIMUS
     Dosage: 2.5 MG, UNK
     Route: 065

REACTIONS (2)
  - Rash [Unknown]
  - Candida infection [Recovering/Resolving]
